FAERS Safety Report 4279457-5 (Version None)
Quarter: 2004Q1

REPORT INFORMATION
  Report Type: 
  Country: None (occurrence: None)
  Receive Date: 20040127
  Receipt Date: 20031016
  Transmission Date: 20041129
  Serious: Yes (Death, Hospitalization)
  Sender: FDA-Public Use
  Company Number: US-GLAXOSMITHKLINE-A0430645A

PATIENT
  Age: 39 Year
  Sex: Female

DRUGS (2)
  1. PAXIL [Suspect]
     Dosage: 50MG PER DAY
     Route: 048
  2. DEPAKOTE [Concomitant]

REACTIONS (1)
  - DEATH [None]
